FAERS Safety Report 11093686 (Version 1)
Quarter: 2015Q2

REPORT INFORMATION
  Report Type: Spontaneous
  Country: AU (occurrence: AU)
  Receive Date: 20150506
  Receipt Date: 20150506
  Transmission Date: 20150821
  Serious: Yes (Other)
  Sender: FDA-Public Use
  Company Number: AU-SA-2015SA059633

PATIENT
  Age: 69 Year
  Sex: Male

DRUGS (7)
  1. IRBESARTAN. [Suspect]
     Active Substance: IRBESARTAN
     Route: 065
  2. ASPIRIN. [Concomitant]
     Active Substance: ASPIRIN
  3. CARVEDILOL HYDROCHLODRIDE [Concomitant]
  4. CLOPIDOGREL [Concomitant]
     Active Substance: CLOPIDOGREL BISULFATE
  5. RAMIPRIL. [Suspect]
     Active Substance: RAMIPRIL
     Route: 048
  6. MAGNESIUM [Concomitant]
     Active Substance: MAGNESIUM
  7. NOVOMIX [Concomitant]
     Active Substance: INSULIN ASPART

REACTIONS (2)
  - Cellulitis [Unknown]
  - Cough [Unknown]
